FAERS Safety Report 5107837-4 (Version None)
Quarter: 2006Q3

REPORT INFORMATION
  Report Type: 
  Country: None (occurrence: None)
  Receive Date: 20060919
  Receipt Date: 20060822
  Transmission Date: 20061208
  Serious: Yes (Hospitalization, Other)
  Sender: FDA-Public Use
  Company Number: US-BAYER-200615215BWH

PATIENT
  Age: 82 Year
  Sex: Male
  Weight: 58 kg

DRUGS (20)
  1. SORAFENIB [Suspect]
     Indication: THYROID CANCER METASTATIC
     Dosage: TOTAL DAILY DOSE: 800 MG  UNIT DOSE: 200 MG
     Route: 048
     Dates: start: 20060413, end: 20060523
  2. SORAFENIB [Suspect]
     Dosage: TOTAL DAILY DOSE: 400 MG  UNIT DOSE: 200 MG
     Route: 048
     Dates: start: 20060818, end: 20060818
  3. SORAFENIB [Suspect]
     Dosage: TOTAL DAILY DOSE: 400 MG  UNIT DOSE: 200 MG
     Route: 048
     Dates: start: 20060601, end: 20060807
  4. SORAFENIB [Suspect]
     Dosage: TOTAL DAILY DOSE: 200 MG  UNIT DOSE: 200 MG
     Route: 048
     Dates: start: 20060817, end: 20060817
  5. SORAFENIB [Suspect]
     Dosage: TOTAL DAILY DOSE: 200 MG  UNIT DOSE: 200 MG
     Route: 048
     Dates: start: 20060808, end: 20060808
  6. SORAFENIB [Suspect]
     Route: 048
     Dates: start: 20060829
  7. SYNTHROID [Concomitant]
  8. LASIX [Concomitant]
  9. NORVASC [Concomitant]
  10. ALLOPURINOL [Concomitant]
  11. PREVACID [Concomitant]
     Route: 048
  12. NEUTRA-PHOS [Concomitant]
  13. ASPIRIN [Concomitant]
  14. FERROUS GLUCONATE [Concomitant]
  15. ACTOS [Concomitant]
  16. LIPITOR [Concomitant]
  17. M.V.I. [Concomitant]
  18. CALCIUM W/VITAMIN D [Concomitant]
  19. FLOMAX [Concomitant]
  20. FOSAMAX [Concomitant]

REACTIONS (7)
  - BLOOD CALCIUM DECREASED [None]
  - BLOOD GLUCOSE INCREASED [None]
  - BLOOD POTASSIUM DECREASED [None]
  - CONVULSION [None]
  - DIARRHOEA [None]
  - HYPOMAGNESAEMIA [None]
  - HYPOPHOSPHATAEMIA [None]
